FAERS Safety Report 15704686 (Version 2)
Quarter: 2018Q4

REPORT INFORMATION
  Report Type: Spontaneous
  Country: IN (occurrence: IN)
  Receive Date: 20181210
  Receipt Date: 20181214
  Transmission Date: 20190205
  Serious: Yes (Hospitalization, Other)
  Sender: FDA-Public Use
  Company Number: IN-SA-2018SA323565

PATIENT
  Age: 50 Year
  Sex: Male

DRUGS (4)
  1. RIFAMPICIN [Suspect]
     Active Substance: RIFAMPIN
     Indication: PULMONARY TUBERCULOSIS
     Dosage: UNK, DRUG CHALLENGE TEST
     Route: 048
     Dates: start: 2018
  2. ETHAMBUTOL/ISONIAZID/PYRAZINAMIDE/RIFAMPICIN [Suspect]
     Active Substance: ETHAMBUTOL\ISONIAZID\PYRAZINAMIDE\RIFAMYCIN
     Indication: PULMONARY TUBERCULOSIS
     Dosage: 3 DF, 75 MG ISONIAZID, 150 MG RIFAMPICIN, 400 MG PYRAZINAMIDE AND 275 MG ETHAMBUTOL
     Route: 048
     Dates: start: 20180131, end: 20180218
  3. METHOTREXATE. [Suspect]
     Active Substance: METHOTREXATE
     Indication: PSORIASIS
     Dosage: UNK, INJECTION WEEKLY
  4. METHOTREXATE. [Suspect]
     Active Substance: METHOTREXATE
     Indication: IMMUNOSUPPRESSION
     Route: 048

REACTIONS (11)
  - Skin exfoliation [Recovered/Resolved]
  - Erythrodermic psoriasis [Recovered/Resolved]
  - Pallor [Recovered/Resolved]
  - Erythema [Recovered/Resolved]
  - Skin abrasion [Recovered/Resolved]
  - Treatment noncompliance [Unknown]
  - Pyrexia [Recovered/Resolved]
  - Oedema [Recovered/Resolved]
  - Dermatitis exfoliative [Recovered/Resolved]
  - Skin plaque [Recovered/Resolved]
  - Pruritus [Recovered/Resolved]

NARRATIVE: CASE EVENT DATE: 201802
